FAERS Safety Report 11246258 (Version 1)
Quarter: 2015Q3

REPORT INFORMATION
  Report Type: Spontaneous
  Country: US (occurrence: None)
  Receive Date: 20150706
  Receipt Date: 20150706
  Transmission Date: 20151125
  Serious: Yes (Life-Threatening, Hospitalization, Disabling)
  Sender: FDA-Public Use
  Company Number: None

PATIENT
  Age: 37 Year
  Sex: Female
  Weight: 72.58 kg

DRUGS (2)
  1. MEDROXYPROGESTERONE [Concomitant]
     Active Substance: MEDROXYPROGESTERONE
  2. ABSORICA [Suspect]
     Active Substance: ISOTRETINOIN
     Indication: ACNE CYSTIC
     Dosage: 1 PILL
     Route: 048
     Dates: start: 20150409, end: 20150611

REACTIONS (2)
  - Multiple sclerosis [None]
  - Hypoaesthesia [None]

NARRATIVE: CASE EVENT DATE: 20150611
